FAERS Safety Report 19511369 (Version 1)
Quarter: 2021Q3

REPORT INFORMATION
  Report Type: Spontaneous
  Country: US (occurrence: US)
  Receive Date: 20210709
  Receipt Date: 20210709
  Transmission Date: 20211014
  Serious: No
  Sender: FDA-Public Use
  Company Number: US-PFIZER INC-2021556560

PATIENT

DRUGS (8)
  1. PAMIDRONATE DISODIUM. [Suspect]
     Active Substance: PAMIDRONATE DISODIUM
     Dosage: 1 DF, CYCLIC (THE STANDARD REGIMEN OF PAMIDRONATE (90 DOSE) REGIMEN: 1 DOSE , CYCLIC (EVERY 28 DAYS)
     Dates: start: 202012
  2. PAMIDRONATE DISODIUM. [Suspect]
     Active Substance: PAMIDRONATE DISODIUM
     Dosage: 1 DF, CYCLIC (THE STANDARD REGIMEN OF PAMIDRONATE (90 DOSE) REGIMEN: 1 DOSE , CYCLIC (EVERY 28 DAYS)
     Dates: start: 202101
  3. PACLITAXEL. [Concomitant]
     Active Substance: PACLITAXEL
     Dosage: 80 MG PER METERS SQUARED, WEEKLY
     Dates: start: 20210204
  4. PAMIDRONATE DISODIUM. [Suspect]
     Active Substance: PAMIDRONATE DISODIUM
     Dosage: 1 DF (ONE DOSE)
     Dates: start: 20201110, end: 20201110
  5. PAMIDRONATE DISODIUM. [Suspect]
     Active Substance: PAMIDRONATE DISODIUM
     Dosage: UNK, WEEKLY
     Dates: start: 20210401
  6. PACLITAXEL. [Concomitant]
     Active Substance: PACLITAXEL
     Dosage: SECOND DOSE
     Dates: start: 20210210
  7. PACLITAXEL. [Concomitant]
     Active Substance: PACLITAXEL
     Dosage: WEEKLY
     Dates: start: 20210424
  8. PAMIDRONATE DISODIUM. [Suspect]
     Active Substance: PAMIDRONATE DISODIUM
     Indication: HYPERCALCAEMIA
     Dosage: 1 DF (ONE DOSE)
     Dates: start: 202011

REACTIONS (1)
  - Drug ineffective [Unknown]
